FAERS Safety Report 26041502 (Version 1)
Quarter: 2025Q4

REPORT INFORMATION
  Report Type: Spontaneous
  Country: CA (occurrence: CA)
  Receive Date: 20251113
  Receipt Date: 20251113
  Transmission Date: 20260117
  Serious: Yes (Death)
  Sender: VERTEX
  Company Number: CA-VERTEX PHARMACEUTICALS-2025-019167

PATIENT
  Sex: Male

DRUGS (1)
  1. TRIKAFTA [Suspect]
     Active Substance: ELEXACAFTOR\IVACAFTOR\TEZACAFTOR
     Indication: Cystic fibrosis
     Dosage: UNK
     Route: 048

REACTIONS (8)
  - Completed suicide [Fatal]
  - Overdose [Fatal]
  - Fatigue [Unknown]
  - Arthralgia [Unknown]
  - Anxiety [Unknown]
  - Brain fog [Unknown]
  - Depression [Unknown]
  - Acne [Unknown]
